FAERS Safety Report 25279658 (Version 1)
Quarter: 2025Q2

REPORT INFORMATION
  Report Type: Spontaneous
  Country: US (occurrence: US)
  Receive Date: 20250507
  Receipt Date: 20250507
  Transmission Date: 20250716
  Serious: No
  Sender: TEVA
  Company Number: US-TEVA-VS-3325806

PATIENT
  Age: 28 Year
  Sex: Male

DRUGS (3)
  1. UZEDY [Suspect]
     Active Substance: RISPERIDONE
     Indication: Schizoaffective disorder depressive type
     Route: 065
     Dates: start: 20250414
  2. OLANZAPINE [Concomitant]
     Active Substance: OLANZAPINE
     Indication: Product used for unknown indication
  3. DEPAKOTE [Concomitant]
     Active Substance: DIVALPROEX SODIUM
     Indication: Product used for unknown indication
     Dosage: 1 TABLET BY MOUTH AT BEDTIME
     Route: 048

REACTIONS (5)
  - Anger [Unknown]
  - Off label use [Unknown]
  - Insomnia [Recovered/Resolved]
  - Anxiety [Unknown]
  - Discomfort [Unknown]

NARRATIVE: CASE EVENT DATE: 20250401
